FAERS Safety Report 6502884-X (Version None)
Quarter: 2009Q4

REPORT INFORMATION
  Report Type: 
  Country: None (occurrence: None)
  Receive Date: 20091201
  Receipt Date: 20090113
  Transmission Date: 20100525
  Serious: Yes (Death)
  Sender: FDA-Public Use
  Company Number: 180398USA

PATIENT

DRUGS (1)
  1. NICARDIPINE HCL [Suspect]

REACTIONS (1)
  - BRADYCARDIA [None]
